FAERS Safety Report 8376330-8 (Version None)
Quarter: 2012Q2

REPORT INFORMATION
  Report Type: 
  Country: None (occurrence: None)
  Receive Date: 20120517
  Receipt Date: 20120504
  Transmission Date: 20120825
  Serious: Yes (Death, Other)
  Sender: FDA-Public Use
  Company Number: MPS1-1000447

PATIENT
  Age: 19 Month
  Sex: Male
  Weight: 15 kg

DRUGS (3)
  1. PREDNISOLONE [Concomitant]
  2. NEORAL (CICLOSAPORIN) [Concomitant]
  3. ALDURAZYME [Suspect]
     Indication: MUCOPOLYSACCHARIDOSIS I
     Dosage: 100 U/KG, 1 X/W, INTRAVENOUS
     Route: 042
     Dates: start: 20101015, end: 20110210

REACTIONS (11)
  - PULMONARY HAEMORRHAGE [None]
  - TACHYCARDIA [None]
  - STEM CELL TRANSPLANT [None]
  - GRAFT VERSUS HOST DISEASE IN SKIN [None]
  - OXYGEN SATURATION DECREASED [None]
  - DISSEMINATED INTRAVASCULAR COAGULATION [None]
  - RASH ERYTHEMATOUS [None]
  - BRONCHOSPASM [None]
  - ACUTE RESPIRATORY DISTRESS SYNDROME [None]
  - INFUSION RELATED REACTION [None]
  - INFECTION IN AN IMMUNOCOMPROMISED HOST [None]
